FAERS Safety Report 15155233 (Version 1)
Quarter: 2018Q3

REPORT INFORMATION
  Report Type: Spontaneous
  Country: US (occurrence: US)
  Receive Date: 20180717
  Receipt Date: 20180717
  Transmission Date: 20181010
  Serious: Yes (Other)
  Sender: FDA-Public Use
  Company Number: US-SA-2018SA182803

PATIENT
  Sex: Male

DRUGS (1)
  1. DULCOLAX NOS [Suspect]
     Active Substance: BISACODYL OR DOCUSATE SODIUM
     Dosage: 1 DF, QD
     Route: 048
     Dates: start: 201806

REACTIONS (4)
  - Weight decreased [Unknown]
  - Drug ineffective [Unknown]
  - Dialysis [Unknown]
  - Constipation [Unknown]

NARRATIVE: CASE EVENT DATE: 20180703
